FAERS Safety Report 7161974-1 (Version None)
Quarter: 2010Q4

REPORT INFORMATION
  Report Type: 
  Country: None (occurrence: None)
  Receive Date: 20101215
  Receipt Date: 20101206
  Transmission Date: 20110411
  Serious: Yes (Other)
  Sender: FDA-Public Use
  Company Number: US-JNJCH-2010028333

PATIENT
  Sex: Female
  Weight: 56.7 kg

DRUGS (1)
  1. BENADRYL [Suspect]
     Indication: ARTHROPOD STING
     Dosage: TEXT:ONE KAPSEAL ONCE
     Route: 048

REACTIONS (2)
  - HYPERSENSITIVITY [None]
  - OFF LABEL USE [None]
